FAERS Safety Report 6442815-4 (Version None)
Quarter: 2009Q4

REPORT INFORMATION
  Report Type: 
  Country: None (occurrence: None)
  Receive Date: 20091117
  Receipt Date: 20091110
  Transmission Date: 20100525
  Serious: Yes (Hospitalization)
  Sender: FDA-Public Use
  Company Number: FR-EISAI INC.-E2020-05532-SPO-FR

PATIENT
  Age: 84 Year
  Sex: Female

DRUGS (5)
  1. ARICEPT [Suspect]
     Indication: DRUG USE FOR UNKNOWN INDICATION
     Route: 048
     Dates: end: 20090907
  2. TIANEPTINE [Suspect]
     Indication: DRUG USE FOR UNKNOWN INDICATION
     Route: 048
     Dates: start: 20090301, end: 20090907
  3. TIANEPTINE [Suspect]
  4. TIAPRIDE [Suspect]
     Indication: DRUG USE FOR UNKNOWN INDICATION
     Dosage: UNKNOWN
     Route: 048
     Dates: start: 20090301, end: 20090907
  5. EBIXA [Suspect]
     Indication: DRUG USE FOR UNKNOWN INDICATION
     Dosage: UNKNOWN
     Route: 048
     Dates: start: 20090301

REACTIONS (3)
  - LOSS OF CONSCIOUSNESS [None]
  - MIOSIS [None]
  - PULMONARY OEDEMA [None]
